FAERS Safety Report 9329678 (Version 1)
Quarter: 2013Q2

REPORT INFORMATION
  Report Type: Spontaneous
  Country: US (occurrence: US)
  Receive Date: 20130604
  Receipt Date: 20130604
  Transmission Date: 20140414
  Serious: Yes (Other)
  Sender: FDA-Public Use
  Company Number: US-SANOFI-AVENTIS-2012SA090740

PATIENT
  Sex: Female

DRUGS (5)
  1. SOLOSTAR [Suspect]
     Indication: TYPE 1 DIABETES MELLITUS
     Dosage: DOSE OF 10-14 UNITS DAILY BASED ON HER ACTIVITY LEVELS AND INTAKE
  2. SOLOSTAR [Suspect]
     Indication: TYPE 1 DIABETES MELLITUS
     Dosage: DOSE OF 10-14 UNITS DAILY BASED ON HER ACTIVITY LEVELS AND INTAKE
  3. LANTUS SOLOSTAR [Suspect]
     Indication: TYPE 1 DIABETES MELLITUS
     Dosage: DOSE OF 10-14 UNITS DAILY BASED ON HER ACTIVITY LEVELS AND INTAKE
     Route: 058
  4. LANTUS SOLOSTAR [Suspect]
     Indication: TYPE 1 DIABETES MELLITUS
     Dosage: DOSE OF 10-14 UNITS DAILY BASED ON HER ACTIVITY LEVELS AND INTAKE
     Route: 058
  5. HUMALOG [Suspect]
     Route: 051

REACTIONS (3)
  - Hypoglycaemia [Unknown]
  - Incorrect product storage [Unknown]
  - Weight decreased [Unknown]
